FAERS Safety Report 6277240-2 (Version None)
Quarter: 2009Q3

REPORT INFORMATION
  Report Type: 
  Country: None (occurrence: None)
  Receive Date: 20090722
  Receipt Date: 20090227
  Transmission Date: 20100115
  Serious: No
  Sender: FDA-Public Use
  Company Number: US-BRISTOL-MYERS SQUIBB COMPANY-14524540

PATIENT
  Age: 68 Year
  Sex: Female
  Weight: 63 kg

DRUGS (2)
  1. COUMADIN [Suspect]
     Indication: THROMBOSIS
     Dosage: DOSAGE DECREASED FROM 8MG TO 4MG;THEN INCREASED TO 8MG
  2. DOXYCYCLINE [Concomitant]
     Indication: TOOTH EXTRACTION
     Dosage: 2 WEEKS AGO

REACTIONS (2)
  - INTERNATIONAL NORMALISED RATIO FLUCTUATION [None]
  - TRANSIENT ISCHAEMIC ATTACK [None]
